FAERS Safety Report 7874561-4 (Version None)
Quarter: 2011Q4

REPORT INFORMATION
  Report Type: 
  Country: None (occurrence: None)
  Receive Date: 20111031
  Receipt Date: 20111027
  Transmission Date: 20120403
  Serious: Yes (Other)
  Sender: FDA-Public Use
  Company Number: US-PFIZER INC-2011263138

PATIENT
  Sex: Female
  Weight: 54.422 kg

DRUGS (6)
  1. DIAZEPAM [Concomitant]
     Dosage: UNK
  2. NAPRELAN [Concomitant]
     Dosage: UNK
  3. LYRICA [Suspect]
     Indication: NEURALGIA
     Dosage: 50 MG, 3X/DAY
     Route: 048
     Dates: start: 20111008, end: 20111010
  4. VICODIN ES [Concomitant]
     Dosage: UNK
  5. XANAX [Concomitant]
     Dosage: UNK
  6. FLEXERIL [Concomitant]
     Dosage: UNK

REACTIONS (2)
  - MENTAL IMPAIRMENT [None]
  - FEELING ABNORMAL [None]
